FAERS Safety Report 4530483-8 (Version None)
Quarter: 2004Q4

REPORT INFORMATION
  Report Type: 
  Country: None (occurrence: None)
  Receive Date: 20041216
  Receipt Date: 20041216
  Transmission Date: 20050328
  Serious: Yes (Other)
  Sender: FDA-Public Use
  Company Number: None

PATIENT
  Age: 6 Year
  Sex: Male
  Weight: 29.4838 kg

DRUGS (2)
  1. TENEX [Suspect]
     Indication: ABNORMAL BEHAVIOUR
     Dosage: 1/2 PILL  TWICE DAILY ORAL
     Route: 048
     Dates: start: 20040801, end: 20041215
  2. TENEX [Suspect]
     Indication: ATTENTION DEFICIT/HYPERACTIVITY DISORDER
     Dosage: 1/2 PILL  TWICE DAILY ORAL
     Route: 048
     Dates: start: 20040801, end: 20041215

REACTIONS (1)
  - AGGRESSION [None]
